FAERS Safety Report 14543523 (Version 1)
Quarter: 2018Q1

REPORT INFORMATION
  Report Type: Spontaneous
  Country: US (occurrence: US)
  Receive Date: 20180216
  Receipt Date: 20180216
  Transmission Date: 20180509
  Serious: Yes (Hospitalization, Other)
  Sender: FDA-Public Use
  Company Number: US-SHIRE-US201806139

PATIENT
  Age: 45 Year
  Sex: Male

DRUGS (1)
  1. GATTEX [Suspect]
     Active Substance: TEDUGLUTIDE\WATER
     Indication: SHORT-BOWEL SYNDROME
     Dosage: 4.4 MG, 1X/DAY:QD
     Route: 065
     Dates: start: 20161209

REACTIONS (1)
  - Cholecystitis infective [Not Recovered/Not Resolved]

NARRATIVE: CASE EVENT DATE: 20180206
